FAERS Safety Report 5118120-5 (Version None)
Quarter: 2006Q3

REPORT INFORMATION
  Report Type: 
  Country: None (occurrence: None)
  Receive Date: 20060926
  Receipt Date: 20060915
  Transmission Date: 20061208
  Serious: Yes (Death, Hospitalization)
  Sender: FDA-Public Use
  Company Number: 200618882GDDC

PATIENT
  Age: 65 Year
  Sex: Male
  Weight: 73 kg

DRUGS (4)
  1. CPD SOLUTION IN GLASS BOTTLES INJ [Suspect]
     Indication: NEOPLASM MALIGNANT
     Dosage: 190 MG CYC IV
     Route: 042
     Dates: start: 20060418, end: 20060418
  2. FLUOROURACIL [Suspect]
     Indication: NEOPLASM MALIGNANT
  3. DURAGESIC-100 [Concomitant]
  4. ZOFRAN [Concomitant]

REACTIONS (10)
  - ASPIRATION [None]
  - ASTHENIA [None]
  - DEHYDRATION [None]
  - DISORIENTATION [None]
  - DYSPHAGIA [None]
  - MUCOSAL INFLAMMATION [None]
  - ODYNOPHAGIA [None]
  - ORAL CANDIDIASIS [None]
  - PNEUMONIA [None]
  - RESPIRATORY FAILURE [None]
